APPROVED DRUG PRODUCT: CELECOXIB
Active Ingredient: CELECOXIB
Strength: 50MG
Dosage Form/Route: CAPSULE;ORAL
Application: A078857 | Product #001
Applicant: PHARMOBEDIENT CONSULTING LLC
Approved: May 30, 2014 | RLD: No | RS: No | Type: DISCN